FAERS Safety Report 21602729 (Version 3)
Quarter: 2023Q1

REPORT INFORMATION
  Report Type: Report from Study
  Country: US (occurrence: US)
  Receive Date: 20221116
  Receipt Date: 20230127
  Transmission Date: 20230418
  Serious: Yes (Hospitalization)
  Sender: FDA-Public Use
  Company Number: US-PFIZER INC-PV202200098686

PATIENT
  Age: 76 Year

DRUGS (2)
  1. TALZENNA [Suspect]
     Active Substance: TALAZOPARIB TOSYLATE
     Dosage: 1 MG, DAILY
     Route: 048
     Dates: start: 20220908, end: 20220928
  2. TECENTRIQ [Suspect]
     Active Substance: ATEZOLIZUMAB
     Dosage: 1200 MG/DOSE
     Route: 042
     Dates: start: 20220908, end: 20220928

REACTIONS (1)
  - Embolism [Recovering/Resolving]
